FAERS Safety Report 9626715 (Version 3)
Quarter: 2014Q1

REPORT INFORMATION
  Report Type: Spontaneous
  Country: FR (occurrence: FR)
  Receive Date: 20131016
  Receipt Date: 20140207
  Transmission Date: 20141002
  Serious: Yes (Other)
  Sender: FDA-Public Use
  Company Number: FR-BAYER-2013-123590

PATIENT
  Age: 40 Year
  Sex: Male

DRUGS (3)
  1. SORAFENIB (RAF KINASE INHIBITOR) [Suspect]
     Indication: PAPILLARY THYROID CANCER
     Dosage: 800 MG/DAY
  2. SORAFENIB (RAF KINASE INHIBITOR) [Suspect]
     Indication: PAPILLARY THYROID CANCER
     Dosage: UNK
  3. LEVOTHYROX [Concomitant]

REACTIONS (5)
  - Pancreatic atrophy [Not Recovered/Not Resolved]
  - Pancreatic insufficiency [Recovered/Resolved]
  - Diarrhoea [None]
  - Off label use [None]
  - Steatorrhoea [Recovered/Resolved]
